FAERS Safety Report 14933185 (Version 2)
Quarter: 2021Q1

REPORT INFORMATION
  Report Type: Report from Study
  Country: US (occurrence: US)
  Receive Date: 20180524
  Receipt Date: 20210323
  Transmission Date: 20210419
  Serious: Yes (Hospitalization)
  Sender: FDA-Public Use
  Company Number: PHEH2018US018652

PATIENT
  Sex: Female

DRUGS (1)
  1. COSENTYX [Suspect]
     Active Substance: SECUKINUMAB
     Indication: PRODUCT USED FOR UNKNOWN INDICATION
     Dosage: UNK
     Route: 065
     Dates: end: 20200514

REACTIONS (9)
  - Condition aggravated [Unknown]
  - Diarrhoea [Unknown]
  - Fall [Unknown]
  - Bronchitis [Unknown]
  - Viral infection [Unknown]
  - Vomiting [Unknown]
  - Pyrexia [Recovered/Resolved]
  - Concussion [Unknown]
  - Joint swelling [Unknown]
